FAERS Safety Report 6110921-X (Version None)
Quarter: 2009Q1

REPORT INFORMATION
  Report Type: 
  Country: None (occurrence: None)
  Receive Date: 20090311
  Receipt Date: 20090304
  Transmission Date: 20090719
  Serious: Yes (Other)
  Sender: FDA-Public Use
  Company Number: US-BIOGENIDEC-2009BI006977

PATIENT
  Age: 28 Year
  Sex: Female

DRUGS (2)
  1. TYSABRI [Suspect]
     Indication: MULTIPLE SCLEROSIS
     Route: 042
     Dates: start: 20090216
  2. TYSABRI [Suspect]
     Route: 042

REACTIONS (5)
  - CONVULSION [None]
  - DIPLOPIA [None]
  - DIZZINESS [None]
  - HEMIPARESIS [None]
  - HYPOAESTHESIA [None]
